FAERS Safety Report 16366912 (Version 1)
Quarter: 2019Q2

REPORT INFORMATION
  Report Type: Report from Study
  Country: US (occurrence: US)
  Receive Date: 20190529
  Receipt Date: 20190529
  Transmission Date: 20190711
  Serious: Yes (Hospitalization)
  Sender: FDA-Public Use
  Company Number: US-GILEAD-2019-0410407

PATIENT
  Sex: Male

DRUGS (17)
  1. IRBESARTAN. [Concomitant]
     Active Substance: IRBESARTAN
  2. TORSEMIDE. [Concomitant]
     Active Substance: TORSEMIDE
  3. METOPROLOL. [Concomitant]
     Active Substance: METOPROLOL
  4. AMBRISENTAN [Suspect]
     Active Substance: AMBRISENTAN
     Indication: PRODUCT USED FOR UNKNOWN INDICATION
     Dosage: 10 MG
     Route: 065
  5. VITAMIN D2 [Concomitant]
     Active Substance: ERGOCALCIFEROL
  6. VITAMIN B2 [RIBOFLAVIN] [Concomitant]
  7. ENOXAPARIN [Concomitant]
     Active Substance: ENOXAPARIN
  8. FINASTERIDE. [Concomitant]
     Active Substance: FINASTERIDE
  9. IRON [Concomitant]
     Active Substance: IRON
  10. LEVOTHYROXINE. [Concomitant]
     Active Substance: LEVOTHYROXINE
  11. OMEPRAZOLE. [Concomitant]
     Active Substance: OMEPRAZOLE
  12. VITAMIN B12 [Concomitant]
     Active Substance: CYANOCOBALAMIN
  13. SILDENAFIL. [Concomitant]
     Active Substance: SILDENAFIL
  14. WARFARIN [Concomitant]
     Active Substance: WARFARIN
  15. ULORIC [Concomitant]
     Active Substance: FEBUXOSTAT
  16. ATORVASTATIN [Concomitant]
     Active Substance: ATORVASTATIN
  17. TRAMADOL. [Concomitant]
     Active Substance: TRAMADOL

REACTIONS (1)
  - Pleural effusion [Not Recovered/Not Resolved]
